FAERS Safety Report 5832848-0 (Version None)
Quarter: 2008Q3

REPORT INFORMATION
  Report Type: 
  Country: None (occurrence: None)
  Receive Date: 20080804
  Receipt Date: 20080723
  Transmission Date: 20090109
  Serious: Yes (Other)
  Sender: FDA-Public Use
  Company Number: FR-PFIZER INC-2008062844

PATIENT
  Age: 64 Year
  Sex: Female

DRUGS (5)
  1. CHANTIX [Suspect]
     Indication: SMOKING CESSATION THERAPY
  2. MIRTAZAPINE [Concomitant]
  3. ALPRAZOLAM [Concomitant]
  4. PAROXETINE HCL [Concomitant]
  5. ZOPICLONE [Concomitant]

REACTIONS (1)
  - DEPRESSION [None]
